FAERS Safety Report 7884425-8 (Version None)
Quarter: 2011Q4

REPORT INFORMATION
  Report Type: 
  Country: None (occurrence: None)
  Receive Date: 20111102
  Receipt Date: 20110922
  Transmission Date: 20120403
  Serious: Yes (Other)
  Sender: FDA-Public Use
  Company Number: US-ASTRAZENECA-2011SE44623

PATIENT
  Age: 51 Year
  Sex: Male

DRUGS (6)
  1. RANITIDINE HCL [Concomitant]
     Route: 048
  2. ZETIA [Concomitant]
     Route: 048
  3. SYNTHROID [Concomitant]
     Route: 048
  4. TRAZODONE HCL [Concomitant]
     Route: 048
  5. VANDETANIB [Suspect]
     Indication: THYROID CANCER
     Route: 048
     Dates: start: 20110712
  6. PERCOCET [Concomitant]
     Dosage: 5-325 MG AS REQUIRED
     Route: 048

REACTIONS (3)
  - DECREASED APPETITE [None]
  - DIARRHOEA [None]
  - VISUAL IMPAIRMENT [None]
